FAERS Safety Report 8314686-2 (Version None)
Quarter: 2012Q2

REPORT INFORMATION
  Report Type: 
  Country: None (occurrence: None)
  Receive Date: 20120426
  Receipt Date: 20120416
  Transmission Date: 20120825
  Serious: Yes (Hospitalization)
  Sender: FDA-Public Use
  Company Number: US-ELI_LILLY_AND_COMPANY-US201204006327

PATIENT
  Age: 39 Year
  Sex: Female

DRUGS (3)
  1. TYLENOL                                 /SCH/ [Concomitant]
     Indication: PAIN
  2. CYMBALTA [Suspect]
     Dosage: 60 MG, UNK
     Dates: start: 20110401, end: 20120415
  3. CYMBALTA [Suspect]
     Dosage: UNK, UNKNOWN

REACTIONS (1)
  - LIVER FUNCTION TEST ABNORMAL [None]
